FAERS Safety Report 23981661 (Version 1)
Quarter: 2024Q2

REPORT INFORMATION
  Report Type: Spontaneous
  Country: CN (occurrence: CN)
  Receive Date: 20240617
  Receipt Date: 20240617
  Transmission Date: 20240715
  Serious: Yes (Hospitalization)
  Sender: FDA-Public Use
  Company Number: CN-Merck Healthcare KGaA-2024031271

PATIENT
  Age: 59 Year
  Sex: Male
  Weight: 65 kg

DRUGS (3)
  1. ERBITUX [Suspect]
     Active Substance: CETUXIMAB
     Indication: Tongue neoplasm malignant stage unspecified
     Dosage: 400 MG, UNKNOWN
     Route: 041
     Dates: start: 20240515, end: 20240515
  2. ERIBULIN [Suspect]
     Active Substance: ERIBULIN
     Indication: Tongue neoplasm malignant stage unspecified
     Route: 041
     Dates: start: 20240515, end: 20240515
  3. PEMBROLIZUMAB [Suspect]
     Active Substance: PEMBROLIZUMAB
     Indication: Tongue neoplasm malignant stage unspecified
     Dosage: 200 MG, DAILY
     Route: 041
     Dates: start: 20240515, end: 20240515

REACTIONS (2)
  - Myelosuppression [Recovering/Resolving]
  - Infection [Recovering/Resolving]

NARRATIVE: CASE EVENT DATE: 20240516
